FAERS Safety Report 8869005 (Version 1)
Quarter: 2012Q4

REPORT INFORMATION
  Report Type: Spontaneous
  Country: DE (occurrence: None)
  Receive Date: 20121022
  Receipt Date: 20121022
  Transmission Date: 20130627
  Serious: Yes (Death, Hospitalization)
  Sender: FDA-Public Use
  Company Number: 140282

PATIENT
  Age: 15 Year
  Sex: Female

DRUGS (1)
  1. CYCLOSPORINE [Suspect]

REACTIONS (4)
  - Posterior reversible encephalopathy syndrome [None]
  - Blood pressure increased [None]
  - Pulmonary mycosis [None]
  - Pulmonary haemorrhage [None]
